FAERS Safety Report 11216657 (Version 1)
Quarter: 2015Q2

REPORT INFORMATION
  Report Type: Spontaneous
  Country: US (occurrence: US)
  Receive Date: 20150624
  Receipt Date: 20150624
  Transmission Date: 20150821
  Serious: No
  Sender: FDA-Public Use
  Company Number: US-PFIZER INC-2015206945

PATIENT
  Age: 48 Year
  Sex: Female

DRUGS (1)
  1. NEURONTIN [Suspect]
     Active Substance: GABAPENTIN
     Indication: LUMBAR RADICULOPATHY
     Dosage: 300 MG, 2X/DAY
     Route: 048
     Dates: start: 200902, end: 200903

REACTIONS (4)
  - Feeling abnormal [Recovered/Resolved]
  - Drug hypersensitivity [Unknown]
  - Product use issue [Unknown]
  - Formication [Recovered/Resolved]
